FAERS Safety Report 17184430 (Version 1)
Quarter: 2019Q4

REPORT INFORMATION
  Report Type: Spontaneous
  Country: US (occurrence: US)
  Receive Date: 20191219
  Receipt Date: 20191219
  Transmission Date: 20200122
  Serious: Yes (Hospitalization)
  Sender: FDA-Public Use
  Company Number: None

PATIENT
  Age: 75 Year
  Sex: Female
  Weight: 100 kg

DRUGS (2)
  1. APIXABAN [Suspect]
     Active Substance: APIXABAN
     Indication: THROMBOSIS PROPHYLAXIS
     Route: 048
     Dates: start: 20190807, end: 20190818
  2. ANDEXXA [Concomitant]
     Active Substance: ANDEXANET ALFA
     Dates: start: 20190818, end: 20190819

REACTIONS (4)
  - Constipation [None]
  - Diverticulum intestinal [None]
  - Cerebral haemorrhage [None]
  - Diarrhoea haemorrhagic [None]

NARRATIVE: CASE EVENT DATE: 20190818
